FAERS Safety Report 25227542 (Version 2)
Quarter: 2025Q2

REPORT INFORMATION
  Report Type: Report from Study
  Country: US (occurrence: US)
  Receive Date: 20250422
  Receipt Date: 20250520
  Transmission Date: 20250716
  Serious: No
  Sender: TAKEDA
  Company Number: US-TAKEDA-US201902437

PATIENT
  Age: 67 Year
  Sex: Female
  Weight: 77 kg

DRUGS (38)
  1. HUMAN IMMUNOGLOBULIN G\HYALURONIDASE RECOMBINANT HUMAN [Suspect]
     Active Substance: HUMAN IMMUNOGLOBULIN G\HYALURONIDASE (HUMAN RECOMBINANT)
     Indication: Immunodeficiency common variable
     Dosage: 60 GRAM, Q4WEEKS
     Dates: start: 20160127
  2. HUMAN IMMUNOGLOBULIN G\HYALURONIDASE RECOMBINANT HUMAN [Suspect]
     Active Substance: HUMAN IMMUNOGLOBULIN G\HYALURONIDASE (HUMAN RECOMBINANT)
     Dosage: 60 GRAM, Q4WEEKS
     Dates: start: 20160223
  3. HUMAN IMMUNOGLOBULIN G\HYALURONIDASE RECOMBINANT HUMAN [Suspect]
     Active Substance: HUMAN IMMUNOGLOBULIN G\HYALURONIDASE (HUMAN RECOMBINANT)
     Dosage: 60 GRAM, Q4WEEKS
  4. CUVITRU [Suspect]
     Active Substance: HUMAN IMMUNOGLOBULIN G
     Indication: Immunodeficiency common variable
     Dosage: 30 GRAM, Q2WEEKS
     Dates: start: 20250123
  5. DIPHENHYDRAMINE HYDROCHLORIDE [Concomitant]
     Active Substance: DIPHENHYDRAMINE HYDROCHLORIDE
  6. BUPROPION HYDROCHLORIDE [Concomitant]
     Active Substance: BUPROPION HYDROCHLORIDE
  7. EPINEPHRINE [Concomitant]
     Active Substance: EPINEPHRINE
  8. REXULTI [Concomitant]
     Active Substance: BREXPIPRAZOLE
  9. ADVAIR HFA [Concomitant]
     Active Substance: FLUTICASONE PROPIONATE\SALMETEROL XINAFOATE
  10. VITAMIN D3 [Concomitant]
     Active Substance: CHOLECALCIFEROL
  11. ACETAMINOPHEN [Concomitant]
     Active Substance: ACETAMINOPHEN
  12. SINGULAIR [Concomitant]
     Active Substance: MONTELUKAST SODIUM
  13. FAMOTIDINE [Concomitant]
     Active Substance: FAMOTIDINE
  14. AMLODIPINE BESYLATE [Concomitant]
     Active Substance: AMLODIPINE BESYLATE
  15. SODIUM CHLORIDE [Concomitant]
     Active Substance: SODIUM CHLORIDE
  16. ARMOUR THYROID [Concomitant]
     Active Substance: THYROID, PORCINE
  17. NEXIUM [Concomitant]
     Active Substance: ESOMEPRAZOLE MAGNESIUM
  18. VITAMIN C [Concomitant]
     Active Substance: ASCORBIC ACID
  19. MAGNESIUM [Concomitant]
     Active Substance: MAGNESIUM
  20. LOSARTAN AND HYDROCHLOROTHIAZIDE [Concomitant]
     Active Substance: HYDROCHLOROTHIAZIDE\LOSARTAN POTASSIUM
  21. FISH OIL [Concomitant]
     Active Substance: FISH OIL
  22. ZINC [Concomitant]
     Active Substance: ZINC
  23. BIOTIN [Concomitant]
     Active Substance: BIOTIN
  24. DIPHENHYDRAMINE [Concomitant]
     Active Substance: DIPHENHYDRAMINE
  25. OLANZAPINE [Concomitant]
     Active Substance: OLANZAPINE
  26. AMLODIPINE [Concomitant]
     Active Substance: AMLODIPINE BESYLATE
  27. TRINTELLIX [Concomitant]
     Active Substance: VORTIOXETINE HYDROBROMIDE
  28. FOLIC ACID [Concomitant]
     Active Substance: FOLIC ACID
  29. VITAMIN D [Concomitant]
     Active Substance: VITAMIN D NOS
  30. EFFEXOR [Concomitant]
     Active Substance: VENLAFAXINE HYDROCHLORIDE
  31. SYMBICORT [Concomitant]
     Active Substance: BUDESONIDE\FORMOTEROL FUMARATE DIHYDRATE
  32. ESTRADIOL [Concomitant]
     Active Substance: ESTRADIOL
  33. LABETALOL HYDROCHLORIDE [Concomitant]
     Active Substance: LABETALOL HYDROCHLORIDE
  34. CLONIDINE HYDROCHLORIDE [Concomitant]
     Active Substance: CLONIDINE HYDROCHLORIDE
  35. OLMESARTAN MEDOXOMIL [Concomitant]
     Active Substance: OLMESARTAN MEDOXOMIL
  36. ALBUTEROL SULFATE [Concomitant]
     Active Substance: ALBUTEROL SULFATE
  37. LIDOCAINE [Concomitant]
     Active Substance: LIDOCAINE
  38. SPIRONOLACTONE [Concomitant]
     Active Substance: SPIRONOLACTONE

REACTIONS (17)
  - Dry mouth [Unknown]
  - Kidney enlargement [Unknown]
  - Bronchitis [Unknown]
  - Seasonal allergy [Unknown]
  - COVID-19 [Unknown]
  - Upper respiratory tract infection [Unknown]
  - Device leakage [Unknown]
  - Multiple allergies [Unknown]
  - Cystitis [Unknown]
  - Pain [Unknown]
  - Weight decreased [Unknown]
  - Infection [Unknown]
  - Infusion site haemorrhage [Recovered/Resolved]
  - Blood pressure increased [Recovering/Resolving]
  - Infusion site erythema [Unknown]
  - Infusion site swelling [Unknown]
  - Infusion site pain [Unknown]

NARRATIVE: CASE EVENT DATE: 20190123
